FAERS Safety Report 8164098-X (Version None)
Quarter: 2012Q1

REPORT INFORMATION
  Report Type: 
  Country: None (occurrence: None)
  Receive Date: 20120221
  Receipt Date: 20120206
  Transmission Date: 20120608
  Serious: Yes (Hospitalization, Other)
  Sender: FDA-Public Use
  Company Number: 1000028405

PATIENT
  Sex: Male

DRUGS (7)
  1. CITALOPRAM HYDROBROMIDE [Suspect]
     Indication: DEPRESSION
     Dosage: 50 MG (50 MG, 1 IN 1 D),ORAL
     Route: 048
     Dates: start: 20120114
  2. TOPAMAX (TOPIRAMATE) (TOPIRAMATE) [Concomitant]
  3. CLONAZEPAM [Concomitant]
  4. ANTIDEPRESSANTS (ANTIDEPRESSANTS) [Suspect]
     Indication: DEPRESSION
     Dates: start: 20120114
  5. LAMOTRIGIN (LAMOTRIGINE) (LAMOTRIGINE) [Concomitant]
  6. VIMPAT [Suspect]
     Indication: CONVULSION
     Dosage: (50 MG)
     Dates: start: 20120114
  7. EPILIM (VALPROATE SODIUM)  (VALPROATE SODIUM) [Concomitant]

REACTIONS (4)
  - SUICIDE ATTEMPT [None]
  - INTENTIONAL OVERDOSE [None]
  - DRUG INTERACTION [None]
  - PATHOLOGICAL GAMBLING [None]
